FAERS Safety Report 6686262-9 (Version None)
Quarter: 2010Q2

REPORT INFORMATION
  Report Type: 
  Country: None (occurrence: None)
  Receive Date: 20100419
  Receipt Date: 20100413
  Transmission Date: 20101027
  Serious: No
  Sender: FDA-Public Use
  Company Number: JP-ASTRAZENECA-2010SE04925

PATIENT
  Age: 71 Year
  Sex: Female
  Weight: 60 kg

DRUGS (6)
  1. IRESSA [Suspect]
     Indication: LUNG ADENOCARCINOMA
     Route: 048
     Dates: start: 20090415, end: 20090515
  2. AMARYL [Concomitant]
     Route: 048
  3. NORVASC [Concomitant]
     Route: 048
  4. CANDESARTAN CILEXETIL [Concomitant]
     Route: 048
  5. CRESTOR [Concomitant]
     Route: 048
  6. PARIET [Concomitant]
     Route: 048

REACTIONS (1)
  - LIVER DISORDER [None]
